FAERS Safety Report 5455085-0 (Version None)
Quarter: 2007Q3

REPORT INFORMATION
  Report Type: 
  Country: None (occurrence: None)
  Receive Date: 20070913
  Receipt Date: 20070820
  Transmission Date: 20080115
  Serious: Yes (Death)
  Sender: FDA-Public Use
  Company Number: 6037536

PATIENT
  Age: 26 Year
  Sex: Female

DRUGS (6)
  1. FLUOXETINE HYDROCHLORIDE [Suspect]
     Indication: DRUG USE FOR UNKNOWN INDICATION
  2. ZYPREXA [Suspect]
     Indication: DRUG USE FOR UNKNOWN INDICATION
     Dosage: 15 MG (5 MG, 3 IN 1 D)
     Dates: start: 20051220
  3. DIAZEPAM [Concomitant]
  4. MICROGYNON (ETHINYLESTRADIOL, LEVONORGESTREL) [Concomitant]
  5. NITRAZEPAM [Concomitant]
  6. TRIMEPRAZINE (ALIMEMAZINE) [Concomitant]

REACTIONS (10)
  - ABNORMAL BEHAVIOUR [None]
  - COLD SWEAT [None]
  - COUGH [None]
  - EMOTIONAL DISTRESS [None]
  - HEADACHE [None]
  - HYPERHIDROSIS [None]
  - LOWER RESPIRATORY TRACT INFECTION [None]
  - PALLOR [None]
  - SUDDEN DEATH [None]
  - SYNCOPE [None]
